FAERS Safety Report 11283813 (Version 1)
Quarter: 2015Q3

REPORT INFORMATION
  Report Type: Spontaneous
  Country: US (occurrence: US)
  Receive Date: 20150720
  Receipt Date: 20150720
  Transmission Date: 20151125
  Serious: No
  Sender: FDA-Public Use
  Company Number: US-PFIZER INC-2015237217

PATIENT
  Age: 33 Year
  Sex: Male

DRUGS (8)
  1. JANUVIA [Concomitant]
     Active Substance: SITAGLIPTIN PHOSPHATE
     Dosage: 100 MG, DAILY
     Route: 048
     Dates: start: 20150306
  2. LOPID [Suspect]
     Active Substance: GEMFIBROZIL
     Dosage: 600 MG, 2X/DAY
     Route: 048
     Dates: start: 20150306
  3. LOVASTATIN. [Concomitant]
     Active Substance: LOVASTATIN
     Dosage: 40 MG, 1X/DAY
     Route: 048
     Dates: start: 20150306
  4. NOVOLOG [Concomitant]
     Active Substance: INSULIN ASPART
     Dosage: 20 IU, 5-10 MINUTES BEFORE AM AND PM MEALS
     Route: 058
     Dates: start: 20150313
  5. INSULIN [Concomitant]
     Active Substance: INSULIN NOS
     Dosage: 0.5 ML, UNK (USE AS DIRECTED)
     Dates: start: 20150421
  6. LEVEMIR [Concomitant]
     Active Substance: INSULIN DETEMIR
     Dosage: 15 IU, DAILY
     Route: 058
     Dates: start: 20150306
  7. TYLENOL WITH CODEINE [Concomitant]
     Active Substance: ACETAMINOPHEN\CODEINE PHOSPHATE
     Indication: PAIN
     Dosage: 1 DF, AS NEEDED (ACETAMINOPHEN 300MG - CODEINE 30MG, 1 TAB ORALLY EVERY 6 HOURS AS NEEDED)
     Route: 048
     Dates: start: 20150306
  8. FENOFIBRATE. [Concomitant]
     Active Substance: FENOFIBRATE
     Dosage: 54 MG, DAILY
     Route: 048
     Dates: start: 20150429

REACTIONS (3)
  - Neuropathy peripheral [Unknown]
  - Attention deficit/hyperactivity disorder [Unknown]
  - Gastrooesophageal reflux disease [Unknown]

NARRATIVE: CASE EVENT DATE: 20150513
